FAERS Safety Report 25358997 (Version 2)
Quarter: 2025Q2

REPORT INFORMATION
  Report Type: Spontaneous
  Country: FR (occurrence: FR)
  Receive Date: 20250526
  Receipt Date: 20250530
  Transmission Date: 20250717
  Serious: Yes (Other)
  Sender: AMGEN
  Company Number: FR-BEH-2025205915

PATIENT
  Age: 50 Year
  Sex: Female

DRUGS (1)
  1. TAVNEOS [Suspect]
     Active Substance: AVACOPAN
     Indication: Anti-neutrophil cytoplasmic antibody positive vasculitis
     Dosage: 30 MG, BID
     Route: 048
     Dates: start: 20250502

REACTIONS (1)
  - Glomerular filtration rate abnormal [Unknown]

NARRATIVE: CASE EVENT DATE: 20250501
